FAERS Safety Report 20600087 (Version 2)
Quarter: 2022Q1

REPORT INFORMATION
  Report Type: Spontaneous
  Country: US (occurrence: US)
  Receive Date: 20220316
  Receipt Date: 20220322
  Transmission Date: 20220423
  Serious: No
  Sender: FDA-Public Use
  Company Number: US-ORGANON-O2203USA001234

PATIENT
  Age: 23 Year
  Sex: Female
  Weight: 88.435 kg

DRUGS (1)
  1. NEXPLANON [Suspect]
     Active Substance: ETONOGESTREL
     Dosage: 1 IMPLANT
     Route: 058
     Dates: start: 20220308, end: 20220308

REACTIONS (3)
  - Complication of device insertion [Recovered/Resolved]
  - Device kink [Unknown]
  - No adverse event [Unknown]

NARRATIVE: CASE EVENT DATE: 20220308
